FAERS Safety Report 20987547 (Version 2)
Quarter: 2022Q3

REPORT INFORMATION
  Report Type: Spontaneous
  Country: US (occurrence: US)
  Receive Date: 20220621
  Receipt Date: 20220811
  Transmission Date: 20221027
  Serious: No
  Sender: FDA-Public Use
  Company Number: US-PFIZER INC-202200856370

PATIENT
  Age: 64 Year
  Sex: Female
  Weight: 110.67 kg

DRUGS (14)
  1. PAXLOVID [Suspect]
     Active Substance: NIRMATRELVIR\RITONAVIR
     Indication: COVID-19 treatment
     Dosage: UNK
     Route: 048
     Dates: start: 20220612, end: 20220613
  2. PAXLOVID [Suspect]
     Active Substance: NIRMATRELVIR\RITONAVIR
     Dosage: UNK(20 TAB PACK)
     Route: 048
     Dates: start: 20220613, end: 20220614
  3. MAGNESIUM [Concomitant]
     Active Substance: MAGNESIUM
     Dosage: 400 MG
     Route: 048
     Dates: start: 20110511
  4. VITAMIN B12 [Concomitant]
     Active Substance: CYANOCOBALAMIN
     Dosage: 500 UG, 2X/DAY
     Dates: start: 20180403
  5. VITAMIN D NOS [Concomitant]
     Active Substance: VITAMIN D NOS
     Dosage: 100 UG, DAILY(TAKE TWO TABS DAILY)
     Route: 048
  6. CITALOPRAM HYDROBROMIDE [Concomitant]
     Active Substance: CITALOPRAM HYDROBROMIDE
     Indication: Persistent depressive disorder
     Dosage: 20 MG, DAILY
     Route: 048
     Dates: start: 20110907
  7. LISINOPRIL [Concomitant]
     Active Substance: LISINOPRIL
     Indication: Essential hypertension
     Dosage: 10 MG, DAILY
     Route: 048
     Dates: start: 20150402
  8. LEVOTHYROXINE SODIUM [Concomitant]
     Active Substance: LEVOTHYROXINE SODIUM
     Dosage: 75 UG, DAILY
     Route: 048
     Dates: start: 20070508
  9. TRIAMCINOLONE ACETONIDE [Concomitant]
     Active Substance: TRIAMCINOLONE ACETONIDE
     Dosage: 0.1 %, 2X/DAY
     Route: 058
     Dates: start: 20110216
  10. OXAPROZIN [Concomitant]
     Active Substance: OXAPROZIN
     Indication: Back pain
     Dosage: 600 MG, 2X/DAY
     Route: 048
     Dates: start: 20100722
  11. ALBUTEROL SULFATE [Concomitant]
     Active Substance: ALBUTEROL SULFATE
     Indication: Bronchitis
     Dosage: UNK, AS NEEDED(INHALE 2 PUFFS EVERY 4-6)
     Dates: start: 20220204
  12. ALBUTEROL SULFATE [Concomitant]
     Active Substance: ALBUTEROL SULFATE
     Indication: Bronchitis
     Dosage: UNK, AS NEEDED(INHALE 2 PUFFS EVERY 4-6)
     Dates: start: 20100722
  13. FLUTICASONE PROPIONATE [Concomitant]
     Active Substance: FLUTICASONE PROPIONATE
     Indication: Sinusitis
     Dosage: UNK, 2X/DAY(INSTILL 2 SPRAYS IN EACH NOSTRIL TWICE DAILY FOR 7)
     Dates: start: 20220207
  14. FLUTICASONE PROPIONATE [Concomitant]
     Active Substance: FLUTICASONE PROPIONATE
     Dosage: 50 UG, DAILY(THEN EVERY DAY)

REACTIONS (1)
  - Swollen tongue [Recovered/Resolved]

NARRATIVE: CASE EVENT DATE: 20220613
